FAERS Safety Report 23986571 (Version 1)
Quarter: 2024Q2

REPORT INFORMATION
  Report Type: Spontaneous
  Country: US (occurrence: None)
  Receive Date: 20240617
  Receipt Date: 20240617
  Transmission Date: 20240715
  Serious: Yes (Disabling)
  Sender: FDA-Public Use
  Company Number: None

PATIENT
  Age: 57 Year
  Sex: Male
  Weight: 78.4 kg

DRUGS (4)
  1. CLARITHROMYCIN [Suspect]
     Active Substance: CLARITHROMYCIN
     Indication: Helicobacter gastritis
     Dosage: OTHER QUANTITY : 28 TABLET(S);?FREQUENCY : TWICE A DAY;?
     Route: 048
     Dates: start: 20240131, end: 20240214
  2. GLUCOSAMINE [Concomitant]
  3. Chondritine [Concomitant]
  4. Vitamin E3 [Concomitant]

REACTIONS (2)
  - Tinnitus [None]
  - Hypoacusis [None]

NARRATIVE: CASE EVENT DATE: 20240206
